FAERS Safety Report 8824845 (Version 1)
Quarter: 2012Q4

REPORT INFORMATION
  Report Type: 
  Country: FR (occurrence: FR)
  Receive Date: 20121004
  Receipt Date: 20121004
  Transmission Date: 20130627
  Serious: Yes (Hospitalization)
  Sender: FDA-Public Use
  Company Number: FR-ASTRAZENECA-2012SE75521

PATIENT
  Age: 973 Month
  Sex: Male

DRUGS (10)
  1. INEXIUM [Suspect]
     Route: 048
  2. CRESTOR [Suspect]
     Route: 048
  3. ASPIRIN [Suspect]
     Route: 048
  4. COUMADINE [Suspect]
     Route: 048
  5. CORTANCYL [Suspect]
     Indication: ANAEMIA HAEMOLYTIC AUTOIMMUNE
     Route: 048
  6. BACTRIM [Suspect]
     Route: 048
  7. SPECIAFOLDINE [Concomitant]
  8. BISOPROLOL [Concomitant]
  9. RAMIPRIL [Concomitant]
  10. LASILIX [Concomitant]

REACTIONS (6)
  - Accidental overdose [Recovered/Resolved]
  - International normalised ratio increased [Recovered/Resolved]
  - Haematoma [Recovered/Resolved]
  - Renal failure acute [Unknown]
  - Fall [Unknown]
  - Orthostatic hypotension [Unknown]
